FAERS Safety Report 6001982-7 (Version None)
Quarter: 2008Q4

REPORT INFORMATION
  Report Type: 
  Country: None (occurrence: None)
  Receive Date: 20081212
  Receipt Date: 20081203
  Transmission Date: 20090506
  Serious: Yes (Death, Hospitalization)
  Sender: FDA-Public Use
  Company Number: 2008AL011169

PATIENT
  Age: 95 Year
  Sex: Female
  Weight: 45.3597 kg

DRUGS (8)
  1. DIGOXIN [Suspect]
     Indication: HEART RATE IRREGULAR
     Dosage: 0.125MG, DAILY, PO
     Route: 048
     Dates: start: 19900101, end: 20080531
  2. FUROSEMIDE [Concomitant]
  3. BENADRYL [Concomitant]
  4. HYDROCORTISONE [Concomitant]
  5. TRIAMCINOLONE [Concomitant]
  6. CLOBETASOL PROPIONATE [Concomitant]
  7. NIFEDIAC [Concomitant]
  8. ALPRAZOLAM [Concomitant]

REACTIONS (18)
  - BALANCE DISORDER [None]
  - CONFUSIONAL STATE [None]
  - CONTUSION [None]
  - DEPRESSION [None]
  - DIZZINESS [None]
  - FALL [None]
  - FATIGUE [None]
  - HAEMORRHAGE [None]
  - HALLUCINATION [None]
  - HIP SURGERY [None]
  - JOINT SWELLING [None]
  - NAUSEA [None]
  - OEDEMA PERIPHERAL [None]
  - PRURITUS [None]
  - RASH [None]
  - RECTAL HAEMORRHAGE [None]
  - SKIN DISCOLOURATION [None]
  - VOMITING [None]
